FAERS Safety Report 9656810 (Version 1)
Quarter: 2013Q4

REPORT INFORMATION
  Report Type: Spontaneous
  Country: US (occurrence: None)
  Receive Date: 20131028
  Receipt Date: 20131028
  Transmission Date: 20140711
  Serious: Yes (Other)
  Sender: FDA-Public Use
  Company Number: AUR-APL-2013-08802

PATIENT
  Age: 38 Year
  Sex: Female

DRUGS (9)
  1. QUETIAPINE (QUETIAPINE) [Suspect]
     Indication: PSYCHOTIC DISORDER
     Dosage: 100 MG (50 MG, 2 IN 1 D), ORAL
     Route: 048
  2. MICROGYNON [Suspect]
     Indication: MENORRHAGIA
     Dosage: 1 DOSAGE FORMS (1 DOSAGE FORMS, 1 IN 1 D), ORAL
     Route: 048
     Dates: end: 20131008
  3. CARBAMAZEPINE (CARBAMAZEPINE) [Concomitant]
  4. CETIRIZINE DIHYDROCHLORIDE) (CETIRIZINE HYDROCHLORIDE) [Concomitant]
  5. CO-CODAMOL (PANADEINE CO) [Concomitant]
  6. IBUPROFEN (IBUPROFEN) [Concomitant]
  7. LANSOPRAZOLE (LANSOPRAZOLE) [Concomitant]
  8. PYRIDOXINE HYDROCHLORIDE (PYRIDOXINE HYDROCHLORIDE) [Concomitant]
  9. SUMATRIPTAN SUCCINATE (SUMATRIPTAN SUCCINATE) [Concomitant]

REACTIONS (1)
  - Deep vein thrombosis [None]
